FAERS Safety Report 9559099 (Version 1)
Quarter: 2013Q3

REPORT INFORMATION
  Report Type: Spontaneous
  Country: US (occurrence: US)
  Receive Date: 20130927
  Receipt Date: 20130927
  Transmission Date: 20140515
  Serious: Yes (Death)
  Sender: FDA-Public Use
  Company Number: US-ASTRAZENECA-2013SE71347

PATIENT
  Age: 64 Year
  Sex: Female

DRUGS (2)
  1. SYMBICORT [Suspect]
     Indication: ASTHMA
     Dosage: UNKNOWN DOSE AND FREQUENCY
     Route: 055
  2. ALBUTEROL [Concomitant]

REACTIONS (2)
  - Respiratory arrest [Fatal]
  - Cardiac failure [Fatal]
